FAERS Safety Report 8963117 (Version 1)
Quarter: 2012Q4

REPORT INFORMATION
  Report Type: Spontaneous
  Country: US (occurrence: None)
  Receive Date: 20121206
  Receipt Date: 20121206
  Transmission Date: 20130627
  Serious: Yes (Other)
  Sender: FDA-Public Use
  Company Number: 2012033951

PATIENT
  Age: 55 Year
  Sex: Female
  Weight: 79.38 kg

DRUGS (1)
  1. PRIVIGEN (IMMUNE GLOBULIN INTRAVENOUS (HUMAN) 10% LIQUID) [Suspect]
     Indication: CHRONIC INFLAMMATORY DEMYELINATING POLYRADICULONEUROPATHY
     Dosage: SEE IMAGE
     Dates: start: 20121026, end: 20121030

REACTIONS (1)
  - Leukopenia [None]
